FAERS Safety Report 11745477 (Version 1)
Quarter: 2015Q4

REPORT INFORMATION
  Report Type: Spontaneous
  Country: US (occurrence: None)
  Receive Date: 20151116
  Receipt Date: 20151116
  Transmission Date: 20160304
  Serious: Yes (Life-Threatening)
  Sender: FDA-Public Use
  Company Number: None

PATIENT
  Age: 28 Year
  Sex: Female
  Weight: 54.43 kg

DRUGS (4)
  1. EQUATE WALMART BRAND COLD MULTI-SYMPTOM/DAYTIME NON-DROWSY [Concomitant]
  2. BRINTELLIX [Suspect]
     Active Substance: VORTIOXETINE HYDROBROMIDE
     Indication: DEPRESSION
     Dosage: 1  PILL
     Route: 048
     Dates: start: 20151019, end: 20151113
  3. XANAX [Concomitant]
     Active Substance: ALPRAZOLAM
  4. VISTARIL [Concomitant]
     Active Substance: HYDROXYZINE PAMOATE

REACTIONS (7)
  - Emotional poverty [None]
  - Vomiting [None]
  - Suicidal ideation [None]
  - Vaginal haemorrhage [None]
  - Condition aggravated [None]
  - Nausea [None]
  - Staring [None]

NARRATIVE: CASE EVENT DATE: 20151113
